FAERS Safety Report 6149068-5 (Version None)
Quarter: 2009Q2

REPORT INFORMATION
  Report Type: 
  Country: None (occurrence: None)
  Receive Date: 20090407
  Receipt Date: 20090330
  Transmission Date: 20091009
  Serious: Yes (Other)
  Sender: FDA-Public Use
  Company Number: 230062M08FRA

PATIENT
  Age: 39 Year
  Sex: Female

DRUGS (3)
  1. REBIF [Suspect]
     Indication: MULTIPLE SCLEROSIS
     Dosage: SUBCUTANEOUS
     Route: 058
     Dates: start: 20080616, end: 20080828
  2. IBUPROFEN [Concomitant]
  3. SOLUMEDROL (METHYLPREDNISOLONE) (METHYLPREDNISOLONE) [Concomitant]

REACTIONS (1)
  - CYTOLYTIC HEPATITIS [None]
